FAERS Safety Report 8465127-6 (Version None)
Quarter: 2012Q2

REPORT INFORMATION
  Report Type: 
  Country: None (occurrence: None)
  Receive Date: 20120626
  Receipt Date: 20120615
  Transmission Date: 20120825
  Serious: Yes (Other)
  Sender: FDA-Public Use
  Company Number: US-JNJFOC-20120609065

PATIENT

DRUGS (5)
  1. ANTI-TNF THERAPY [Suspect]
     Indication: PSORIATIC ARTHROPATHY
  2. SULFASALAZINE [Concomitant]
  3. REMICADE [Suspect]
     Indication: PSORIATIC ARTHROPATHY
     Route: 042
  4. PREDNISONE TAB [Suspect]
     Indication: PRODUCT USED FOR UNKNOWN INDICATION
  5. ARAVA [Concomitant]

REACTIONS (6)
  - IMPULSIVE BEHAVIOUR [None]
  - ABNORMAL BEHAVIOUR [None]
  - URTICARIA [None]
  - CHILLS [None]
  - FEELING ABNORMAL [None]
  - TREMOR [None]
